FAERS Safety Report 7910719-3 (Version None)
Quarter: 2011Q4

REPORT INFORMATION
  Report Type: 
  Country: None (occurrence: None)
  Receive Date: 20111111
  Receipt Date: 20110809
  Transmission Date: 20120403
  Serious: Yes (Hospitalization)
  Sender: FDA-Public Use
  Company Number: PHEH2011US008923

PATIENT
  Sex: Female

DRUGS (18)
  1. SIMVASTATIN [Concomitant]
     Dosage: 400 MG, DAILY AT NIGHT
  2. RANITIDINE [Concomitant]
     Dosage: 300 MG, BID
  3. SEROQUEL [Concomitant]
     Dosage: 300 MG, DAILY AT NIGHT
  4. SENNA [Concomitant]
     Dosage: TWICE A DAY
  5. METFORMIN HCL [Concomitant]
     Dosage: 500 MG, QID
  6. TRAZODONE HCL [Concomitant]
     Dosage: 50 MG, DAILY AT NIGHT
  7. COMPAZINE [Concomitant]
     Dosage: 10 MG, DAILY (4-6 HRS)
  8. CLOZAPINE [Concomitant]
     Dosage: 20 MG, DAILY AT NIGHT
  9. ATENOLOL [Concomitant]
     Dosage: 25 MG, DAILY
  10. MELOXICAM [Concomitant]
     Dosage: 7.5 MG, BID
  11. INTERFERON BETA-1B [Suspect]
     Dosage: UNK
     Route: 058
  12. ONDANSETRON [Concomitant]
     Dosage: 8 MG, BID
  13. LOVAZA [Concomitant]
     Dosage: 1200 MG, BID
  14. POTASSIUM CHLORIDE [Concomitant]
     Dosage: 20 MEQ, QOD
  15. VENLAFAXINE [Concomitant]
     Dosage: 225 MG, DAILY
  16. FUROSEMIDE [Concomitant]
     Dosage: 40 MG, BID
  17. ZANAFLEX [Concomitant]
     Dosage: 2 MG, EVERY 8 HRS
  18. TEMAZEPAM [Concomitant]
     Dosage: 30 MG, DAILY

REACTIONS (2)
  - BLISTER [None]
  - PAIN [None]
